FAERS Safety Report 22341027 (Version 4)
Quarter: 2025Q4

REPORT INFORMATION
  Report Type: Report from Study
  Country: CA (occurrence: CA)
  Receive Date: 20230518
  Receipt Date: 20251218
  Transmission Date: 20260118
  Serious: Yes (Other)
  Sender: TAKEDA
  Company Number: CA-TAKEDA-2023TUS046542

PATIENT
  Age: 54 Year
  Sex: Female

DRUGS (4)
  1. VEDOLIZUMAB [Suspect]
     Active Substance: VEDOLIZUMAB
     Indication: Crohn^s disease
     Dosage: 300 MILLIGRAM
  2. VEDOLIZUMAB [Suspect]
     Active Substance: VEDOLIZUMAB
     Dosage: 300 MILLIGRAM
  3. VEDOLIZUMAB [Suspect]
     Active Substance: VEDOLIZUMAB
     Dosage: 300 MILLIGRAM
  4. METHOTREXATE [Concomitant]
     Active Substance: METHOTREXATE
     Dosage: UNK

REACTIONS (10)
  - Diverticulitis [Unknown]
  - Gait disturbance [Not Recovered/Not Resolved]
  - Abdominal pain upper [Not Recovered/Not Resolved]
  - Malaise [Not Recovered/Not Resolved]
  - Headache [Not Recovered/Not Resolved]
  - Groin pain [Unknown]
  - Chromaturia [Unknown]
  - Urine odour abnormal [Unknown]
  - Drug ineffective [Not Recovered/Not Resolved]
  - Abdominal pain [Unknown]

NARRATIVE: CASE EVENT DATE: 20230505
